FAERS Safety Report 5222903-0 (Version None)
Quarter: 2007Q1

REPORT INFORMATION
  Report Type: 
  Country: None (occurrence: None)
  Receive Date: 20070129
  Receipt Date: 20070119
  Transmission Date: 20070707
  Serious: Yes (Hospitalization, Other)
  Sender: FDA-Public Use
  Company Number: BR-PFIZER INC-2006153643

PATIENT
  Sex: Male

DRUGS (6)
  1. FRONTAL [Suspect]
     Indication: INSOMNIA
     Route: 048
  2. TICLID [Concomitant]
     Route: 048
  3. TENORETIC 100 [Concomitant]
     Route: 048
  4. COZAAR [Concomitant]
     Route: 048
  5. ARCALION [Concomitant]
     Route: 048
     Dates: start: 20060801, end: 20061101
  6. LORAX [Concomitant]
     Route: 048

REACTIONS (6)
  - BENIGN PROSTATIC HYPERPLASIA [None]
  - DRUG INEFFECTIVE [None]
  - PROSTATECTOMY [None]
  - PROSTATIC OPERATION [None]
  - URETHRAL OBSTRUCTION [None]
  - URINARY TRACT INFECTION [None]
